FAERS Safety Report 9168609 (Version 1)
Quarter: 2013Q1

REPORT INFORMATION
  Report Type: Spontaneous
  Country: US (occurrence: US)
  Receive Date: 20130318
  Receipt Date: 20130318
  Transmission Date: 20140127
  Serious: No
  Sender: FDA-Public Use
  Company Number: US-ASTRAZENECA-2013SE14724

PATIENT
  Sex: Female

DRUGS (3)
  1. BRILINTA [Suspect]
     Route: 048
  2. BLOOD PRESSURE MEDICATION [Concomitant]
  3. DIFFERENT MEDICATION [Concomitant]
     Indication: ANTICOAGULANT THERAPY

REACTIONS (2)
  - Feeling abnormal [Unknown]
  - Dizziness [Recovered/Resolved]
